FAERS Safety Report 15592817 (Version 2)
Quarter: 2018Q4

REPORT INFORMATION
  Report Type: Spontaneous
  Country: CA (occurrence: CA)
  Receive Date: 20181107
  Receipt Date: 20181113
  Transmission Date: 20190205
  Serious: Yes (Other)
  Sender: FDA-Public Use
  Company Number: CA-DSJP-DSU-2018-145211

PATIENT

DRUGS (20)
  1. METFORMIN [Concomitant]
     Active Substance: METFORMIN HYDROCHLORIDE
     Indication: TYPE 2 DIABETES MELLITUS
     Dosage: 500 MG, QD
     Route: 048
     Dates: start: 2018
  2. WARFARIN [Concomitant]
     Active Substance: WARFARIN
     Indication: ATRIAL FIBRILLATION
     Dosage: 2 MG, QD
     Route: 065
     Dates: start: 201809
  3. PANTOPRAZOLE [Concomitant]
     Active Substance: PANTOPRAZOLE
     Indication: ABDOMINAL DISCOMFORT
     Dosage: 40 MG, QD
     Route: 048
  4. STATEX                             /00036302/ [Concomitant]
     Active Substance: MORPHINE SULFATE
     Indication: NEUROPATHY PERIPHERAL
     Dosage: 5 MG, ONCE EVERY 1 WK AS NEEDED
     Route: 065
     Dates: start: 201809
  5. IMITREX [Concomitant]
     Active Substance: SUMATRIPTAN SUCCINATE
     Indication: MIGRAINE
     Dosage: 100 MG, BID
     Route: 065
  6. VITAMIN B12 [Concomitant]
     Active Substance: CYANOCOBALAMIN
     Indication: PRODUCT USED FOR UNKNOWN INDICATION
     Dosage: UNK, QD
     Route: 048
  7. PREMARIN [Concomitant]
     Active Substance: ESTROGENS, CONJUGATED
     Indication: MENOPAUSE
     Dosage: 0.625 MG, QD
     Route: 048
  8. BISOPROLOL [Concomitant]
     Active Substance: BISOPROLOL
     Indication: ATRIAL FIBRILLATION
     Dosage: 10 MG, QD
     Route: 048
  9. SYNTHROID [Concomitant]
     Active Substance: LEVOTHYROXINE SODIUM
     Indication: HYPOTHYROIDISM
     Dosage: 88 ?G, QD
     Route: 048
  10. PERINDOPRIL [Concomitant]
     Active Substance: PERINDOPRIL
     Indication: HYPERTENSION
     Dosage: 8 MG, QD
     Route: 048
     Dates: start: 2017
  11. HYDROCHLOROTHIAZIDE. [Concomitant]
     Active Substance: HYDROCHLOROTHIAZIDE
     Indication: HYPERTENSION
     Dosage: 25 MG, QD
     Route: 048
     Dates: start: 2016
  12. ALPRAZOLAM. [Concomitant]
     Active Substance: ALPRAZOLAM
     Indication: ANXIETY
     Dosage: 1 MG, BID
     Route: 065
  13. GLUCOSAMINE [Concomitant]
     Active Substance: GLUCOSAMINE
     Indication: PRODUCT USED FOR UNKNOWN INDICATION
     Dosage: UNK, QD
     Route: 048
  14. ROSUVASTATIN. [Concomitant]
     Active Substance: ROSUVASTATIN
     Indication: BLOOD CHOLESTEROL INCREASED
     Dosage: 10 MG, QD
     Route: 048
     Dates: start: 2018
  15. LIXIANA [Suspect]
     Active Substance: EDOXABAN TOSYLATE
     Indication: ATRIAL FIBRILLATION
     Dosage: 60 MG, QD
     Route: 065
     Dates: start: 201807, end: 20180921
  16. PROVERA [Concomitant]
     Active Substance: MEDROXYPROGESTERONE ACETATE
     Indication: MENOPAUSE
     Dosage: 2.5 MG, QD
     Route: 048
  17. AMLODIPINE [Concomitant]
     Active Substance: AMLODIPINE BESYLATE
     Indication: HYPERTENSION
     Dosage: 5 MG, QD
     Route: 048
     Dates: start: 2009
  18. VITAMIN D                          /00107901/ [Concomitant]
     Active Substance: ERGOCALCIFEROL
     Indication: VITAMIN SUPPLEMENTATION
     Dosage: 1000 IU, QD
     Route: 048
  19. EURO-K20 [Concomitant]
     Indication: BLOOD POTASSIUM DECREASED
     Dosage: 1 DF, BID
     Route: 065
  20. TYLENOL [Concomitant]
     Active Substance: ACETAMINOPHEN
     Indication: PRODUCT USED FOR UNKNOWN INDICATION
     Dosage: 2 DF, BID AS NEEDED

REACTIONS (4)
  - Neurodermatitis [Recovering/Resolving]
  - Blister [Unknown]
  - Hallucination [Recovering/Resolving]
  - Rash generalised [Unknown]

NARRATIVE: CASE EVENT DATE: 201808
